FAERS Safety Report 5427103-7 (Version None)
Quarter: 2007Q3

REPORT INFORMATION
  Report Type: 
  Country: None (occurrence: None)
  Receive Date: 20070823
  Receipt Date: 20070823
  Transmission Date: 20080115
  Serious: Yes (Other)
  Sender: FDA-Public Use
  Company Number: None

PATIENT
  Age: 73 Year
  Sex: Male
  Weight: 90.7194 kg

DRUGS (1)
  1. IBUPROFEN [Suspect]
     Indication: LIGAMENT RUPTURE
     Dosage: 600 MG ONCE PO
     Route: 048
     Dates: start: 20070821, end: 20070821

REACTIONS (4)
  - BURNING SENSATION [None]
  - DYSPEPSIA [None]
  - PHARMACEUTICAL PRODUCT COMPLAINT [None]
  - TONGUE DISORDER [None]
